FAERS Safety Report 7589229-1 (Version None)
Quarter: 2011Q3

REPORT INFORMATION
  Report Type: 
  Country: None (occurrence: None)
  Receive Date: 20110705
  Receipt Date: 20110630
  Transmission Date: 20111222
  Serious: Yes (Hospitalization)
  Sender: FDA-Public Use
  Company Number: NL-B.I. PHARMACEUTICALS,INC./RIDGEFIELD-2011-NL-00229NL

PATIENT
  Age: 10 Year
  Sex: Female

DRUGS (1)
  1. CLONIDINE HCL [Suspect]

REACTIONS (1)
  - GENERAL PHYSICAL CONDITION ABNORMAL [None]
